FAERS Safety Report 12116505 (Version 1)
Quarter: 2016Q1

REPORT INFORMATION
  Report Type: Not Available
  Country: TR (occurrence: TR)
  Receive Date: 20160225
  Receipt Date: 20160225
  Transmission Date: 20160526
  Serious: Yes (Hospitalization)
  Sender: FDA-Public Use
  Company Number: TR-ANIPHARMA-2016-TR-000004

PATIENT
  Age: 74 Year
  Sex: Female

DRUGS (6)
  1. PROPAFENONE HYDROCHLORIDE (NON-SPECIFC) [Suspect]
     Active Substance: PROPAFENONE HYDROCHLORIDE
     Dosage: 600 MG
     Route: 048
  2. METOPROLOL. [Suspect]
     Active Substance: METOPROLOL
     Dosage: 50 MG
  3. DABIGATRAN ETEKSILAT [Concomitant]
     Dosage: 150 MG
  4. ASPIRIN. [Concomitant]
     Active Substance: ASPIRIN
     Dosage: 100 MG
  5. VALSARTAN/HYDROCHLOROTHIAZIDE [Concomitant]
     Active Substance: HYDROCHLOROTHIAZIDE\VALSARTAN
     Dosage: 160/12.5 MG
  6. DILTIAZEM [Concomitant]
     Active Substance: DILTIAZEM
     Dosage: 25 MG
     Route: 042

REACTIONS (2)
  - Hallucination, visual [Unknown]
  - Sinus bradycardia [Unknown]
